FAERS Safety Report 18475310 (Version 3)
Quarter: 2020Q4

REPORT INFORMATION
  Report Type: Spontaneous
  Country: US (occurrence: US)
  Receive Date: 20201106
  Receipt Date: 20201126
  Transmission Date: 20210114
  Serious: No
  Sender: FDA-Public Use
  Company Number: US-PFIZER INC-2020429778

PATIENT
  Age: 71 Year
  Sex: Male
  Weight: 88.44 kg

DRUGS (6)
  1. SPIRULINA [SPIRULINA PLATENSIS] [Concomitant]
     Dosage: UNK
  2. CALCIUM CARBONATE. [Concomitant]
     Active Substance: CALCIUM CARBONATE
     Dosage: UNK
  3. VITAMIN D3 [Concomitant]
     Active Substance: CHOLECALCIFEROL
     Dosage: UNK
  4. TURMERIC CURCUMIN [CURCUMA LONGA RHIZOME] [Concomitant]
     Active Substance: HERBALS\TURMERIC
     Dosage: UNK
  5. INLYTA [Suspect]
     Active Substance: AXITINIB
     Indication: RENAL CELL CARCINOMA
     Dosage: 5 MG, 2X/DAY
     Route: 048
     Dates: start: 202010
  6. ZINC. [Concomitant]
     Active Substance: ZINC
     Dosage: UNK

REACTIONS (6)
  - Back pain [Unknown]
  - Dysphonia [Recovered/Resolved]
  - Fatigue [Unknown]
  - Therapeutic response unexpected [Unknown]
  - Urinary tract infection [Unknown]
  - Oral pain [Unknown]

NARRATIVE: CASE EVENT DATE: 2020
